FAERS Safety Report 5904566-1 (Version None)
Quarter: 2008Q4

REPORT INFORMATION
  Report Type: 
  Country: None (occurrence: None)
  Receive Date: 20081001
  Receipt Date: 20080922
  Transmission Date: 20090506
  Serious: Yes (Death, Other)
  Sender: FDA-Public Use
  Company Number: CA-ELI_LILLY_AND_COMPANY-CA200807004373

PATIENT
  Sex: Male

DRUGS (8)
  1. GEMZAR [Suspect]
     Indication: PANCREATIC CARCINOMA METASTATIC
     Dosage: 2030 MG, UNK
     Route: 042
     Dates: start: 20080516, end: 20080523
  2. TARCEVA [Concomitant]
     Indication: PANCREATIC CARCINOMA METASTATIC
     Dosage: 100 MG, DAILY (1/D)
     Route: 048
  3. ATACAND [Concomitant]
  4. ZOPICLONE [Concomitant]
  5. PREDNISONE [Concomitant]
  6. FLOVENT [Concomitant]
  7. VENTOLIN                                /SCH/ [Concomitant]
  8. HEPARIN SODIUM [Concomitant]

REACTIONS (6)
  - DEATH [None]
  - MALIGNANT NEOPLASM PROGRESSION [None]
  - PLEURAL EFFUSION [None]
  - PULMONARY EMBOLISM [None]
  - PULMONARY TOXICITY [None]
  - RENAL CYST [None]
